FAERS Safety Report 12120486 (Version 1)
Quarter: 2016Q1

REPORT INFORMATION
  Report Type: Spontaneous
  Country: CA (occurrence: CA)
  Receive Date: 20160226
  Receipt Date: 20160226
  Transmission Date: 20160526
  Serious: Yes (Hospitalization)
  Sender: FDA-Public Use
  Company Number: CA-ASTRAZENECA-2016SE19557

PATIENT
  Sex: Female

DRUGS (3)
  1. PULMICORT TURBUHALER [Suspect]
     Active Substance: BUDESONIDE
     Route: 055
  2. GABAPENTIN. [Concomitant]
     Active Substance: GABAPENTIN
     Indication: MYELOPATHY
     Route: 065
     Dates: start: 20160201
  3. TUDORZA GENUAIR [Suspect]
     Active Substance: ACLIDINIUM BROMIDE
     Indication: BRONCHIAL SECRETION RETENTION
     Dosage: TWO TIMES A DAY
     Route: 055
     Dates: start: 201512

REACTIONS (2)
  - Spinal column stenosis [Unknown]
  - Gastric disorder [Not Recovered/Not Resolved]
